FAERS Safety Report 8598734 (Version 2)
Quarter: 2013Q2

REPORT INFORMATION
  Report Type: Spontaneous
  Country: US (occurrence: US)
  Receive Date: 20120605
  Receipt Date: 20130617
  Transmission Date: 20140414
  Serious: Yes (Hospitalization)
  Sender: FDA-Public Use
  Company Number: US-ASTRAZENECA-2012SE35296

PATIENT
  Age: 42 Year
  Sex: Female

DRUGS (17)
  1. NEXIUM [Suspect]
     Indication: GASTROOESOPHAGEAL REFLUX DISEASE
     Route: 048
     Dates: start: 2002, end: 2007
  2. NEXIUM [Suspect]
     Indication: GASTROOESOPHAGEAL REFLUX DISEASE
     Route: 048
     Dates: start: 200202
  3. NEXIUM [Suspect]
     Indication: GASTROOESOPHAGEAL REFLUX DISEASE
     Route: 048
     Dates: start: 20050531
  4. RANITIDINE [Concomitant]
     Indication: GASTROOESOPHAGEAL REFLUX DISEASE
     Dates: start: 20070306
  5. PREVACID [Concomitant]
     Indication: GASTROOESOPHAGEAL REFLUX DISEASE
     Dates: start: 20070306
  6. FAMOTIDINE [Concomitant]
  7. RHINOCORT AQUA [Concomitant]
     Indication: HYPERSENSITIVITY
     Dosage: UPTO 3 TIMES A DAY
  8. LORATADINE [Concomitant]
     Indication: HYPERSENSITIVITY
  9. FLONASE [Concomitant]
     Indication: HYPERSENSITIVITY
     Dates: start: 20070504
  10. DITROPAN XL [Concomitant]
     Indication: BLADDER DISORDER
     Dates: start: 20070306
  11. NABUMETONE [Concomitant]
     Indication: HYPERSENSITIVITY
     Dates: start: 20070504
  12. BUPROPION [Concomitant]
     Dates: start: 20020321
  13. ACYCLOVIR [Concomitant]
     Dates: start: 20020802
  14. PROTONIX [Concomitant]
     Dates: start: 20030204
  15. TRIAMCINOLON [Concomitant]
     Dates: start: 20030204
  16. MOBIC [Concomitant]
     Dates: start: 20030204
  17. EFFEXOR XR [Concomitant]
     Dates: start: 20031029

REACTIONS (16)
  - Gastric disorder [Unknown]
  - Osteoporosis [Unknown]
  - Thoracic vertebral fracture [Unknown]
  - Bone density decreased [Unknown]
  - Fracture [Unknown]
  - Osteopenia [Unknown]
  - Osteoarthritis [Unknown]
  - Intervertebral disc degeneration [Unknown]
  - Joint injury [Unknown]
  - Bone disorder [Unknown]
  - Osteogenesis imperfecta [Unknown]
  - Calcium deficiency [Unknown]
  - Arthritis [Unknown]
  - Osteomalacia [Unknown]
  - Vitamin D deficiency [Unknown]
  - Osteoarthritis [Unknown]
